FAERS Safety Report 11050525 (Version 1)
Quarter: 2015Q2

REPORT INFORMATION
  Report Type: Spontaneous
  Country: US (occurrence: None)
  Receive Date: 20150420
  Receipt Date: 20150420
  Transmission Date: 20150821
  Serious: Yes (Disabling)
  Sender: FDA-Public Use
  Company Number: None

PATIENT
  Age: 57 Year
  Sex: Female
  Weight: 73.94 kg

DRUGS (2)
  1. CIPRO [Suspect]
     Active Substance: CIPROFLOXACIN HYDROCHLORIDE
     Route: 048
  2. CIPRO [Suspect]
     Active Substance: CIPROFLOXACIN HYDROCHLORIDE
     Indication: BACTERIAL FOOD POISONING
     Route: 048

REACTIONS (13)
  - Red blood cell sedimentation rate increased [None]
  - Burning sensation [None]
  - Pain [None]
  - Dry eye [None]
  - Neck pain [None]
  - Malaise [None]
  - Muscle twitching [None]
  - Unevaluable event [None]
  - Anxiety [None]
  - Diabetes mellitus [None]
  - Arthropathy [None]
  - Arthralgia [None]
  - Pain in extremity [None]

NARRATIVE: CASE EVENT DATE: 20100814
